FAERS Safety Report 5881941-5 (Version None)
Quarter: 2008Q3

REPORT INFORMATION
  Report Type: 
  Country: None (occurrence: None)
  Receive Date: 20080912
  Receipt Date: 20080716
  Transmission Date: 20090109
  Serious: No
  Sender: FDA-Public Use
  Company Number: US-ABBOTT-08P-163-0463426-00

PATIENT
  Sex: Male

DRUGS (3)
  1. HUMIRA [Suspect]
     Indication: RHEUMATOID ARTHRITIS
     Dates: start: 20050101, end: 20080101
  2. HUMIRA [Suspect]
     Dates: start: 20080101, end: 20080327
  3. METHYLPREDNISOLONE 16MG TAB [Concomitant]
     Indication: RHEUMATOID ARTHRITIS

REACTIONS (2)
  - LIVER FUNCTION TEST ABNORMAL [None]
  - PANCYTOPENIA [None]
